FAERS Safety Report 4288382-5 (Version None)
Quarter: 2004Q1

REPORT INFORMATION
  Report Type: 
  Country: None (occurrence: None)
  Receive Date: 20040209
  Receipt Date: 20030923
  Transmission Date: 20041129
  Serious: No
  Sender: FDA-Public Use
  Company Number: US-GLAXOSMITHKLINE-A0427086A

PATIENT
  Sex: Female

DRUGS (3)
  1. PAXIL [Suspect]
     Indication: ANXIETY
     Dosage: 20MG UNKNOWN
     Route: 048
  2. PAXIL [Suspect]
     Dosage: 25MG UNKNOWN
     Route: 048
  3. UNSPECIFIED MEDICATION [Concomitant]
     Indication: ANXIETY

REACTIONS (1)
  - DRUG INEFFECTIVE [None]
